FAERS Safety Report 5011147-3 (Version None)
Quarter: 2006Q2

REPORT INFORMATION
  Report Type: 
  Country: None (occurrence: None)
  Receive Date: 20060523
  Receipt Date: 20060508
  Transmission Date: 20061013
  Serious: Yes (Hospitalization)
  Sender: FDA-Public Use
  Company Number: 223036

PATIENT
  Age: 53 Year
  Sex: Female
  Weight: 44.5 kg

DRUGS (5)
  1. HERCEPTIN [Suspect]
     Indication: BREAST CANCER
     Dosage: SEE IMAGE
     Route: 042
     Dates: start: 20051013
  2. HERCEPTIN [Suspect]
     Indication: BREAST CANCER
     Dosage: SEE IMAGE
     Route: 042
     Dates: start: 20051013
  3. RIBOFLAVIN (RIBOFLAVIN) [Concomitant]
  4. ETIZOLAM (ETIZOLAM) [Concomitant]
  5. BEPOTASTINE BESILATE (BEPOTASTINE BESILATE) [Concomitant]

REACTIONS (1)
  - ENDOMETRIAL CANCER [None]
